FAERS Safety Report 9550064 (Version 1)
Quarter: 2013Q3

REPORT INFORMATION
  Report Type: Spontaneous
  Country: CA (occurrence: CA)
  Receive Date: 20130924
  Receipt Date: 20130924
  Transmission Date: 20140515
  Serious: Yes (Hospitalization)
  Sender: FDA-Public Use
  Company Number: CA-009507513-1309CAN011352

PATIENT
  Age: 75 Year
  Sex: Female
  Weight: 56 kg

DRUGS (1)
  1. FOSAMAX [Suspect]
     Indication: PRODUCT USED FOR UNKNOWN INDICATION
     Dosage: 10 MG, QD
     Route: 048

REACTIONS (3)
  - Atypical femur fracture [Not Recovered/Not Resolved]
  - Exostosis [Not Recovered/Not Resolved]
  - Pain in extremity [Not Recovered/Not Resolved]
